FAERS Safety Report 8933966 (Version 1)
Quarter: 2012Q4

REPORT INFORMATION
  Report Type: 
  Country: GB (occurrence: GB)
  Receive Date: 20121129
  Receipt Date: 20121129
  Transmission Date: 20130627
  Serious: Yes (Hospitalization, Other)
  Sender: FDA-Public Use
  Company Number: GB-B.I. PHARMACEUTICALS,INC./RIDGEFIELD-2012-UK-01816UK

PATIENT
  Age: 81 Year
  Sex: Male

DRUGS (1)
  1. DABIGATRAN [Suspect]
     Dosage: 220 mg
     Route: 048
     Dates: start: 20121102

REACTIONS (3)
  - Abdominal pain [Not Recovered/Not Resolved]
  - Hepatic enzyme increased [Not Recovered/Not Resolved]
  - Malaise [Not Recovered/Not Resolved]
